FAERS Safety Report 6221420-9 (Version None)
Quarter: 2009Q2

REPORT INFORMATION
  Report Type: 
  Country: None (occurrence: None)
  Receive Date: 20090610
  Receipt Date: 20090527
  Transmission Date: 20091009
  Serious: Yes (Hospitalization)
  Sender: FDA-Public Use
  Company Number: US-ELI_LILLY_AND_COMPANY-US200611005009

PATIENT
  Sex: Female

DRUGS (6)
  1. FORTEO [Suspect]
     Indication: OSTEOPOROSIS
     Dosage: UNK, UNK
     Dates: start: 20060921, end: 20061024
  2. FORTEO [Suspect]
     Dates: start: 20061121, end: 20061124
  3. CREON [Concomitant]
     Indication: PANCREATIC DISORDER
     Dosage: 400 MG, UNK
  4. ERYTHROMYCIN [Concomitant]
     Dosage: 400 MG, UNK
  5. LORTAB [Concomitant]
     Dosage: UNK, AS NEEDED
  6. MIRALAX [Concomitant]

REACTIONS (12)
  - ARTHRALGIA [None]
  - BACK PAIN [None]
  - DIZZINESS [None]
  - INCONTINENCE [None]
  - MUSCULOSKELETAL DISCOMFORT [None]
  - MUSCULOSKELETAL PAIN [None]
  - MYALGIA [None]
  - NON-CARDIAC CHEST PAIN [None]
  - PAIN [None]
  - PAIN IN EXTREMITY [None]
  - PELVIC PAIN [None]
  - SPINAL FRACTURE [None]
